FAERS Safety Report 5800940-2 (Version None)
Quarter: 2008Q3

REPORT INFORMATION
  Report Type: 
  Country: None (occurrence: None)
  Receive Date: 20080703
  Receipt Date: 20080417
  Transmission Date: 20090109
  Serious: Yes (Hospitalization)
  Sender: FDA-Public Use
  Company Number: US-BOEHRINGER INGELHEIM GMBH, GERMANY-2007-BP-20050BP

PATIENT
  Sex: Male
  Weight: 86 kg

DRUGS (6)
  1. MIRAPEX [Suspect]
     Indication: RESTLESS LEGS SYNDROME
     Route: 048
     Dates: start: 19991230, end: 20070213
  2. MIRAPEX [Suspect]
     Dates: start: 20070601
  3. VIAGRA [Concomitant]
  4. PROPOXYPHENE HCL AND ACETAMINOPHEN [Concomitant]
  5. DOXYCYCLINE HCL [Concomitant]
  6. LAMISIL AT [Concomitant]

REACTIONS (8)
  - DEPRESSION [None]
  - EMOTIONAL DISTRESS [None]
  - HYPERPHAGIA [None]
  - HYPERSEXUALITY [None]
  - OBSESSIVE-COMPULSIVE DISORDER [None]
  - PATHOLOGICAL GAMBLING [None]
  - SUICIDE ATTEMPT [None]
  - WEIGHT INCREASED [None]
